FAERS Safety Report 6197172-8 (Version None)
Quarter: 2009Q2

REPORT INFORMATION
  Report Type: 
  Country: None (occurrence: None)
  Receive Date: 20090520
  Receipt Date: 20090504
  Transmission Date: 20091009
  Serious: Yes (Death)
  Sender: FDA-Public Use
  Company Number: US-GENENTECH-283183

PATIENT

DRUGS (2)
  1. BEVACIZUMAB [Suspect]
     Indication: GLIOBLASTOMA
     Dosage: 10 MG/M2, Q2W
     Route: 065
  2. IRINOTECAN HCL [Suspect]
     Indication: GLIOBLASTOMA
     Route: 065

REACTIONS (3)
  - ADVERSE EVENT [None]
  - DISEASE PROGRESSION [None]
  - UNEVALUABLE EVENT [None]
